FAERS Safety Report 5792052-1 (Version None)
Quarter: 2008Q2

REPORT INFORMATION
  Report Type: 
  Country: None (occurrence: None)
  Receive Date: 20080626
  Receipt Date: 20080624
  Transmission Date: 20081010
  Serious: Yes (Death)
  Sender: FDA-Public Use
  Company Number: PHEH2007US15439

PATIENT
  Sex: Male
  Weight: 48 kg

DRUGS (1)
  1. EXJADE [Suspect]
     Indication: LYMPHATIC DISORDER
     Dosage: 1000 MG, QD
     Route: 048
     Dates: start: 20071120

REACTIONS (2)
  - DEATH [None]
  - LYMPHATIC DISORDER [None]
